FAERS Safety Report 9315794 (Version 1)
Quarter: 2013Q2

REPORT INFORMATION
  Report Type: Spontaneous
  Country: ES (occurrence: ES)
  Receive Date: 20130529
  Receipt Date: 20130529
  Transmission Date: 20140414
  Serious: Yes (Other)
  Sender: FDA-Public Use
  Company Number: ES-ELI_LILLY_AND_COMPANY-ES201305004870

PATIENT
  Sex: Female

DRUGS (1)
  1. FORSTEO [Suspect]
     Dosage: UNK, UNKNOWN

REACTIONS (1)
  - Pericarditis [Unknown]
